FAERS Safety Report 11184089 (Version 3)
Quarter: 2015Q3

REPORT INFORMATION
  Report Type: Report from Study
  Country: KR (occurrence: None)
  Receive Date: 20150610
  Receipt Date: 20150701
  Transmission Date: 20151125
  Serious: Yes (Other)
  Sender: FDA-Public Use
  Company Number: 2015-11519

PATIENT
  Age: 67 Year
  Sex: Male

DRUGS (1)
  1. EYLEA [Suspect]
     Active Substance: AFLIBERCEPT
     Indication: AGE-RELATED MACULAR DEGENERATION
     Dosage: RIGHT EYE (1ST INJECTION)
     Route: 031
     Dates: start: 20140523, end: 20140523

REACTIONS (10)
  - Asthenopia [None]
  - Vision blurred [None]
  - Eye disorder [None]
  - Visual impairment [None]
  - Eye haemorrhage [None]
  - Ophthalmological examination abnormal [None]
  - Diplopia [None]
  - Neovascular age-related macular degeneration [None]
  - Dry eye [None]
  - Retinal haemorrhage [None]

NARRATIVE: CASE EVENT DATE: 2014
